FAERS Safety Report 15325331 (Version 8)
Quarter: 2019Q3

REPORT INFORMATION
  Report Type: Report from Study
  Country: US (occurrence: US)
  Receive Date: 20180828
  Receipt Date: 20190919
  Transmission Date: 20191004
  Serious: Yes (Other)
  Sender: FDA-Public Use
  Company Number: US-JNJFOC-20180214520

PATIENT
  Age: 77 Year
  Sex: Female

DRUGS (25)
  1. IMBRUVICA [Suspect]
     Active Substance: IBRUTINIB
     Dosage: 280 MG, QD
     Route: 048
     Dates: start: 20190327, end: 20190523
  2. ELIQUIS [Concomitant]
     Active Substance: APIXABAN
     Dosage: EVERY OTHER DAY
  3. MULTAQ [Concomitant]
     Active Substance: DRONEDARONE
     Dosage: 400 MG, BID (WITH MEALS)
  4. ATORVASTATIN [Concomitant]
     Active Substance: ATORVASTATIN
  5. MONTELUKAST [Concomitant]
     Active Substance: MONTELUKAST SODIUM
  6. CALCIUM [Concomitant]
     Active Substance: CALCIUM
  7. INSULIN [Concomitant]
     Active Substance: INSULIN NOS
  8. IMBRUVICA [Suspect]
     Active Substance: IBRUTINIB
     Dosage: 420 MG, TID
     Route: 048
     Dates: start: 20161101, end: 20180131
  9. CYCLOBENZAPRINE. [Concomitant]
     Active Substance: CYCLOBENZAPRINE
  10. FLEXERIL [Concomitant]
     Active Substance: CYCLOBENZAPRINE HYDROCHLORIDE
  11. ATENOLOL. [Concomitant]
     Active Substance: ATENOLOL
     Dosage: 100 UNK, UNK
  12. VITAMIN D [Concomitant]
     Active Substance: VITAMIN D NOS
  13. IMBRUVICA [Suspect]
     Active Substance: IBRUTINIB
     Dosage: 140 MG, QD
     Route: 048
     Dates: start: 20161228
  14. IMBRUVICA [Suspect]
     Active Substance: IBRUTINIB
     Dosage: 280 MG, QD
     Route: 048
     Dates: start: 20190620
  15. BENZONATATE. [Concomitant]
     Active Substance: BENZONATATE
     Dosage: 100 UNK, UNK (EVERY 8 HRS)
  16. LOSARTIN [Concomitant]
     Active Substance: LOSARTAN
  17. PANTOPROL [Concomitant]
  18. AMOXICILLIN. [Concomitant]
     Active Substance: AMOXICILLIN
     Dosage: 500 UNK, UNK (EEVRY 8 HRS)
  19. IMBRUVICA [Suspect]
     Active Substance: IBRUTINIB
     Indication: CHRONIC LYMPHOCYTIC LEUKAEMIA
     Dosage: 420 MG, QD
     Route: 048
     Dates: start: 20161221, end: 2018
  20. PREDNISONE. [Suspect]
     Active Substance: PREDNISONE
     Indication: PRODUCT USED FOR UNKNOWN INDICATION
     Dosage: UNK
  21. GLYCERYL TRINITRATE [Concomitant]
     Active Substance: NITROGLYCERIN
  22. CITALOPRAM [Concomitant]
     Active Substance: CITALOPRAM HYDROBROMIDE
  23. MAGNESIUM [Concomitant]
     Active Substance: MAGNESIUM
  24. DIGOXIN. [Concomitant]
     Active Substance: DIGOXIN
     Dosage: EVERY 12 HOURS
  25. SPIRONOLACTONE. [Concomitant]
     Active Substance: SPIRONOLACTONE

REACTIONS (19)
  - Nephrolithiasis [Recovered/Resolved]
  - Somnolence [Recovered/Resolved]
  - Product dose omission [Unknown]
  - Cerebral disorder [Unknown]
  - White blood cell count decreased [Not Recovered/Not Resolved]
  - Atrial fibrillation [Recovered/Resolved]
  - Hair texture abnormal [Recovering/Resolving]
  - Blood glucose abnormal [Not Recovered/Not Resolved]
  - White blood cell count increased [Unknown]
  - Pleural effusion [Recovered/Resolved]
  - Pain in extremity [Not Recovered/Not Resolved]
  - Bronchitis [Not Recovered/Not Resolved]
  - Extra dose administered [Unknown]
  - Hypophagia [Recovered/Resolved]
  - Overdose [Unknown]
  - Nail disorder [Not Recovered/Not Resolved]
  - Weight decreased [Unknown]
  - Muscle spasms [Not Recovered/Not Resolved]
  - Decreased appetite [Not Recovered/Not Resolved]

NARRATIVE: CASE EVENT DATE: 20161101
